FAERS Safety Report 15356900 (Version 2)
Quarter: 2018Q3

REPORT INFORMATION
  Report Type: Spontaneous
  Country: HU (occurrence: HU)
  Receive Date: 20180906
  Receipt Date: 20180919
  Transmission Date: 20181010
  Serious: Yes (Hospitalization)
  Sender: FDA-Public Use
  Company Number: HU-PFIZER INC-2018353684

PATIENT
  Age: 3 Month
  Sex: Female

DRUGS (4)
  1. CEFTAZIDIME. [Suspect]
     Active Substance: CEFTAZIDIME
     Indication: OTITIS MEDIA
     Dosage: UNK, FOR 7 DAYS
     Dates: start: 2014
  2. CIPROFLOXACIN. [Suspect]
     Active Substance: CIPROFLOXACIN
     Indication: OTITIS MEDIA
     Dosage: UNK, FOR 21 DAYS
     Route: 065
     Dates: start: 2014
  3. TOBRAMYCIN. [Suspect]
     Active Substance: TOBRAMYCIN
     Indication: OTITIS MEDIA
     Dosage: UNK, FOR 7 DAYS
     Route: 065
     Dates: start: 2014
  4. MEROPENEM. [Suspect]
     Active Substance: MEROPENEM
     Indication: OTITIS MEDIA
     Dosage: UNK, FOR 21 DAYS
     Route: 065
     Dates: start: 2014

REACTIONS (1)
  - Pulmonary fibrosis [Unknown]

NARRATIVE: CASE EVENT DATE: 2014
